FAERS Safety Report 5249065-8 (Version None)
Quarter: 2007Q1

REPORT INFORMATION
  Report Type: 
  Country: None (occurrence: None)
  Receive Date: 20070228
  Receipt Date: 20060725
  Transmission Date: 20070707
  Serious: No
  Sender: FDA-Public Use
  Company Number: US-GLAXOSMITHKLINE-A0612318A

PATIENT
  Age: 56 Year
  Sex: Female
  Weight: 59.1 kg

DRUGS (1)
  1. VALTREX [Suspect]
     Indication: DRUG USE FOR UNKNOWN INDICATION
     Dosage: 1G THREE TIMES PER DAY
     Route: 048
     Dates: start: 20060210, end: 20060211

REACTIONS (2)
  - BALANCE DISORDER [None]
  - MENTAL IMPAIRMENT [None]
